FAERS Safety Report 21086347 (Version 1)
Quarter: 2022Q3

REPORT INFORMATION
  Report Type: Spontaneous
  Country: US (occurrence: US)
  Receive Date: 20220715
  Receipt Date: 20220715
  Transmission Date: 20221027
  Serious: No
  Sender: FDA-Public Use
  Company Number: US-Calliditas-2022CAL00185

PATIENT
  Age: 45 Year
  Sex: Male

DRUGS (4)
  1. TARPEYO [Suspect]
     Active Substance: BUDESONIDE
     Indication: Haematuria
     Dosage: 16 MG (4 MG CAPSULES) ONCE DAILY
     Route: 048
     Dates: start: 20220512
  2. KCL [Concomitant]
     Active Substance: POTASSIUM CHLORIDE
     Dosage: POTASSIUM CL ER 20 MEQ
  3. CHLORTHALIDONE [Concomitant]
     Active Substance: CHLORTHALIDONE
     Dosage: CHLORTHDALIDONE 25MG EACH QD
  4. LOSARTAN [Concomitant]
     Active Substance: LOSARTAN
     Dosage: MDO INCREASED DOSE LAST MONTH ON ^LOSARTEN^ (SIC)

REACTIONS (3)
  - Weight increased [Unknown]
  - Oedema peripheral [Unknown]
  - Blood pressure increased [Unknown]
